FAERS Safety Report 4950925-3 (Version None)
Quarter: 2006Q1

REPORT INFORMATION
  Report Type: 
  Country: None (occurrence: None)
  Receive Date: 20060322
  Receipt Date: 20060315
  Transmission Date: 20060701
  Serious: Yes (Hospitalization)
  Sender: FDA-Public Use
  Company Number: CZ-BOEHRINGER INGELHEIM PHARMACEUTICALS, INC.-2006-AP-00120AP

PATIENT
  Age: 80 Year
  Sex: Male

DRUGS (4)
  1. SPIRIVA [Suspect]
     Indication: CHRONIC OBSTRUCTIVE PULMONARY DISEASE
     Route: 055
     Dates: start: 20031201
  2. BECODISKS [Concomitant]
     Route: 055
  3. VENTODISCKS [Concomitant]
     Route: 055
  4. EUPHYLLIN [Concomitant]
     Route: 048

REACTIONS (1)
  - INGUINAL HERNIA [None]
